FAERS Safety Report 18502586 (Version 2)
Quarter: 2021Q3

REPORT INFORMATION
  Report Type: Report from Study
  Country: DE (occurrence: DE)
  Receive Date: 20201113
  Receipt Date: 20210804
  Transmission Date: 20211014
  Serious: Yes (Hospitalization, Other)
  Sender: FDA-Public Use
  Company Number: DE-SHIRE-DE202014796

PATIENT
  Age: 44 Year
  Sex: Female
  Weight: 90 kg

DRUGS (27)
  1. L?THYROXINE [LEVOTHYROXINE] [Concomitant]
     Active Substance: LEVOTHYROXINE
     Indication: POST PROCEDURAL COMPLICATION
  2. MAGNESIUM [Concomitant]
     Active Substance: MAGNESIUM
     Indication: HYPOPARATHYROIDISM
  3. PARATHYROID HORMONE [Suspect]
     Active Substance: PARATHYROID HORMONE
     Dosage: 100 MICROGRAM, 1X/DAY:QD
     Route: 058
     Dates: start: 20171205
  4. PARATHYROID HORMONE [Suspect]
     Active Substance: PARATHYROID HORMONE
     Dosage: 100 UNK
     Route: 058
     Dates: start: 20171205, end: 20210721
  5. PARATHYROID HORMONE [Suspect]
     Active Substance: PARATHYROID HORMONE
     Dosage: 100 UNK
     Route: 058
     Dates: start: 20171205, end: 20210721
  6. MAGNESIUM [Concomitant]
     Active Substance: MAGNESIUM
     Indication: MUSCLE SPASMS
     Dosage: 400 MILLIGRAM, QD
     Route: 048
  7. IBUPROFEN. [Concomitant]
     Active Substance: IBUPROFEN
     Dosage: 800 UNK
     Route: 048
  8. TOPAMAX [Concomitant]
     Active Substance: TOPIRAMATE
     Indication: MIGRAINE
     Dosage: 25 MILLIGRAM, BID
     Route: 048
  9. PARATHYROID HORMONE [Suspect]
     Active Substance: PARATHYROID HORMONE
     Dosage: 100 MICROGRAM, 1X/DAY:QD
     Route: 058
     Dates: start: 20200815
  10. PARATHYROID HORMONE [Suspect]
     Active Substance: PARATHYROID HORMONE
     Dosage: 100 UNK
     Route: 058
     Dates: start: 20171205, end: 20210721
  11. CATIONORM [Concomitant]
     Active Substance: CETALKONIUM\GLYCERIN\MINERAL OIL\POLOXAMER 188\TROMETHAMINE\TYLOXAPOL
     Indication: DRY EYE
     Dosage: UNK UNK, PRN
     Route: 050
  12. PARATHYROID HORMONE [Suspect]
     Active Substance: PARATHYROID HORMONE
     Indication: HYPOPARATHYROIDISM
     Dosage: 75 MICROGRAM, 1X/DAY:QD
     Route: 058
     Dates: start: 20171205
  13. PARATHYROID HORMONE [Suspect]
     Active Substance: PARATHYROID HORMONE
     Dosage: 100 MICROGRAM, 1X/DAY:QD
     Route: 058
     Dates: start: 20200815
  14. ASPIRIN. [Concomitant]
     Active Substance: ASPIRIN
     Indication: CEREBROVASCULAR ACCIDENT
  15. CORTISONE [Concomitant]
     Active Substance: CORTISONE
     Indication: PROLAPSE
  16. GAVISCON [Concomitant]
     Active Substance: ALUMINUM HYDROXIDE\MAGNESIUM CARBONATE
     Indication: ABDOMINAL DISCOMFORT
     Dosage: MULTIPLE TIMES DAILY
     Route: 048
  17. PARATHYROID HORMONE [Suspect]
     Active Substance: PARATHYROID HORMONE
     Dosage: 100 MICROGRAM, 1X/DAY:QD
     Route: 058
     Dates: start: 20171205
  18. OZEMPIC [Suspect]
     Active Substance: SEMAGLUTIDE
     Indication: WEIGHT DECREASED
     Dosage: 0.25 MICROGRAM, 1X/WEEK
     Route: 065
     Dates: start: 202003, end: 202003
  19. ALLOPURINOL. [Concomitant]
     Active Substance: ALLOPURINOL
     Indication: HYPERURICAEMIA
     Dosage: UNK, QD
     Route: 048
  20. HERBAL LAXATIVE SENNA [Concomitant]
     Indication: CONSTIPATION
  21. PARATHYROID HORMONE [Suspect]
     Active Substance: PARATHYROID HORMONE
     Indication: HYPOPARATHYROIDISM
     Dosage: 75 MICROGRAM, 1X/DAY:QD
     Route: 058
     Dates: start: 20171205
  22. PARATHYROID HORMONE [Suspect]
     Active Substance: PARATHYROID HORMONE
     Dosage: 100 MICROGRAM, 1X/DAY:QD
     Route: 058
     Dates: start: 20200815
  23. L?THYROXINE [LEVOTHYROXINE] [Concomitant]
     Active Substance: LEVOTHYROXINE
     Indication: THYROIDECTOMY
     Dosage: 200 MICROGRAM, QD
     Route: 048
     Dates: start: 202106
  24. IBUPROFEN. [Concomitant]
     Active Substance: IBUPROFEN
     Indication: PAIN
     Dosage: 600 MILLIGRAM, PRN
  25. PARATHYROID HORMONE [Suspect]
     Active Substance: PARATHYROID HORMONE
     Indication: HYPOPARATHYROIDISM
     Dosage: 75 MICROGRAM, 1X/DAY:QD
     Route: 058
     Dates: start: 20171205
  26. PARATHYROID HORMONE [Suspect]
     Active Substance: PARATHYROID HORMONE
     Dosage: 100 MICROGRAM, 1X/DAY:QD
     Route: 058
     Dates: start: 20171205
  27. ASPIRIN. [Concomitant]
     Active Substance: ASPIRIN
     Indication: POST PROCEDURAL COMPLICATION

REACTIONS (18)
  - Vomiting [Recovered/Resolved]
  - Injection site erythema [Recovered/Resolved]
  - Gastrooesophageal reflux disease [Recovering/Resolving]
  - Nausea [Recovered/Resolved]
  - Blood calcium increased [Recovered/Resolved]
  - Fall [Recovered/Resolved]
  - Migraine [Recovered/Resolved]
  - Back pain [Not Recovered/Not Resolved]
  - Blood calcium decreased [Recovered/Resolved]
  - Dyspepsia [Unknown]
  - Contusion [Recovered/Resolved]
  - Pain [Recovered/Resolved]
  - Cardiovascular insufficiency [Recovered/Resolved]
  - General physical health deterioration [Recovered/Resolved]
  - Tremor [Recovered/Resolved]
  - Intervertebral disc protrusion [Recovering/Resolving]
  - Body temperature decreased [Recovered/Resolved]
  - Gastric ulcer [Recovered/Resolved]

NARRATIVE: CASE EVENT DATE: 201909
